FAERS Safety Report 17522056 (Version 1)
Quarter: 2020Q1

REPORT INFORMATION
  Report Type: Spontaneous
  Country: CN (occurrence: CN)
  Receive Date: 20200310
  Receipt Date: 20200310
  Transmission Date: 20200409
  Serious: Yes (Other)
  Sender: FDA-Public Use
  Company Number: CN-AGG-02-2020-2203

PATIENT

DRUGS (10)
  1. CLOPIDOGREL [Concomitant]
     Active Substance: CLOPIDOGREL BISULFATE
     Dosage: DAPT LOADING DOSE
     Route: 048
  2. ASPIRIN. [Concomitant]
     Active Substance: ASPIRIN
     Dosage: DAPT LOADING DOSE
     Route: 048
  3. HEPARIN [Concomitant]
     Active Substance: HEPARIN SODIUM
     Dosage: 7000 U AFTER ANGIOGRAPHY
  4. OMNISCAN [Concomitant]
     Active Substance: GADODIAMIDE
     Dosage: 0.2 MMOL/KG, FIRST 10 ML INJECTED THROUGH A HIGH-PRESSURE DEVICE AT 3ML/S
     Route: 040
  5. OMNISCAN [Concomitant]
     Active Substance: GADODIAMIDE
     Dosage: 0.2 MMOL/KG, SECOND INJECTION OF REMAINING BOLUS AT 1ML/S
     Route: 040
  6. AGGRASTAT [Suspect]
     Active Substance: TIROFIBAN HYDROCHLORIDE
     Indication: ANTIPLATELET THERAPY
     Route: 022
  7. SALINE [Concomitant]
     Active Substance: SODIUM CHLORIDE
     Dosage: 15 ML SALINE IV INJECTION FOLLOWING FIRST 10 MLS OF GADOLINUM CONTRAST AGENT FOR MAGENETIC RESONANCE
     Route: 042
  8. AGGRASTAT [Suspect]
     Active Substance: TIROFIBAN HYDROCHLORIDE
     Indication: ANTIPLATELET THERAPY
     Route: 041
  9. HEPARIN [Concomitant]
     Active Substance: HEPARIN SODIUM
     Dosage: 3000 U BEFORE ANGIOGRAPNY
  10. SALINE [Concomitant]
     Active Substance: SODIUM CHLORIDE
     Dosage: 15 ML SALINE IV INJECTION FOLLOWING 2ND GADOLINUM CONTRAST AGENT INJECTION
     Route: 042

REACTIONS (1)
  - Coronary revascularisation [Unknown]
